FAERS Safety Report 5084924-0 (Version None)
Quarter: 2006Q3

REPORT INFORMATION
  Report Type: 
  Country: None (occurrence: None)
  Receive Date: 20060815
  Receipt Date: 20060711
  Transmission Date: 20061208
  Serious: Yes (Hospitalization, Disabling, Other)
  Sender: FDA-Public Use
  Company Number: 163-21880-06040655

PATIENT
  Age: 66 Year
  Sex: Female

DRUGS (12)
  1. REVLIMID [Suspect]
     Indication: 5Q-SYNDROME
     Dosage: SEE IMAGE, ORAL
     Route: 048
     Dates: start: 20060317, end: 20060401
  2. REVLIMID [Suspect]
     Indication: ANAEMIA
     Dosage: SEE IMAGE, ORAL
     Route: 048
     Dates: start: 20060317, end: 20060401
  3. REVLIMID [Suspect]
     Indication: MYELODYSPLASTIC SYNDROME
     Dosage: SEE IMAGE, ORAL
     Route: 048
     Dates: start: 20060317, end: 20060401
  4. REVLIMID [Suspect]
     Indication: 5Q-SYNDROME
     Dosage: SEE IMAGE, ORAL
     Route: 048
     Dates: start: 20060418, end: 20060526
  5. REVLIMID [Suspect]
     Indication: ANAEMIA
     Dosage: SEE IMAGE, ORAL
     Route: 048
     Dates: start: 20060418, end: 20060526
  6. REVLIMID [Suspect]
     Indication: MYELODYSPLASTIC SYNDROME
     Dosage: SEE IMAGE, ORAL
     Route: 048
     Dates: start: 20060418, end: 20060526
  7. VALIUM [Suspect]
     Indication: DRUG USE FOR UNKNOWN INDICATION
  8. NEXIUM [Concomitant]
  9. VICODIN [Concomitant]
  10. TRAMADOL HCL [Concomitant]
  11. HYDROCODONE (HYDROCODONE) [Concomitant]
  12. AMOXICILLIN [Concomitant]

REACTIONS (21)
  - ALANINE AMINOTRANSFERASE INCREASED [None]
  - ASPARTATE AMINOTRANSFERASE INCREASED [None]
  - ASTHENIA [None]
  - BLOOD BILIRUBIN INCREASED [None]
  - CHEST DISCOMFORT [None]
  - DIARRHOEA [None]
  - DYSPNOEA [None]
  - FATIGUE [None]
  - GUILLAIN-BARRE SYNDROME [None]
  - HEART RATE INCREASED [None]
  - LIVER FUNCTION TEST ABNORMAL [None]
  - NEURALGIA [None]
  - NEUROPATHY PERIPHERAL [None]
  - NEUTROPHIL COUNT DECREASED [None]
  - PALPITATIONS [None]
  - PROCEDURAL PAIN [None]
  - PRURITUS [None]
  - RASH [None]
  - SYNCOPE [None]
  - TOOTH EXTRACTION [None]
  - WHITE BLOOD CELL COUNT DECREASED [None]
